FAERS Safety Report 11132016 (Version 5)
Quarter: 2015Q4

REPORT INFORMATION
  Report Type: Spontaneous
  Country: US (occurrence: US)
  Receive Date: 20150522
  Receipt Date: 20151006
  Transmission Date: 20160304
  Serious: Yes (Hospitalization)
  Sender: FDA-Public Use
  Company Number: US-ACTELION-A-NJ2015-118381

PATIENT
  Age: 41 Year
  Sex: Female

DRUGS (4)
  1. OPSUMIT [Suspect]
     Active Substance: MACITENTAN
     Indication: PULMONARY HYPERTENSION
     Route: 048
  2. ADCIRCA [Concomitant]
     Active Substance: TADALAFIL
  3. VELETRI [Suspect]
     Active Substance: EPOPROSTENOL
     Indication: PULMONARY HYPERTENSION
     Dosage: 61 NG/KG, PER MIN
     Route: 042
     Dates: start: 20141211
  4. WARFARIN [Concomitant]
     Active Substance: WARFARIN

REACTIONS (8)
  - Oedema [Unknown]
  - Central venous catheterisation [Unknown]
  - Pneumonia [Unknown]
  - Dyspnoea [Unknown]
  - Fluid overload [Unknown]
  - Abdominal distension [Unknown]
  - Fluid retention [Unknown]
  - Chest pain [Unknown]
